FAERS Safety Report 4726191-0 (Version None)
Quarter: 2005Q3

REPORT INFORMATION
  Report Type: 
  Country: None (occurrence: None)
  Receive Date: 20050725
  Receipt Date: 20050707
  Transmission Date: 20060218
  Serious: Yes (Hospitalization)
  Sender: FDA-Public Use
  Company Number: DSA_26649_2005

PATIENT
  Age: 61 Year
  Sex: Female

DRUGS (2)
  1. TAVOR [Suspect]
     Dosage: 50 MG ONCE PO
     Route: 048
     Dates: start: 20050616, end: 20050616
  2. TEMAZEPAM [Suspect]
     Dosage: 400 MG ONCE PO
     Route: 048
     Dates: start: 20050616, end: 20050616

REACTIONS (4)
  - CYANOSIS [None]
  - INTENTIONAL MISUSE [None]
  - OVERDOSE [None]
  - SOMNOLENCE [None]
